FAERS Safety Report 11357123 (Version 1)
Quarter: 2015Q3

REPORT INFORMATION
  Report Type: Spontaneous
  Country: US (occurrence: US)
  Receive Date: 20150803
  Receipt Date: 20150803
  Transmission Date: 20151125
  Serious: No
  Sender: FDA-Public Use
  Company Number: US-ELI_LILLY_AND_COMPANY-US201209001170

PATIENT
  Age: 54 Year
  Sex: Female

DRUGS (6)
  1. ANTIDEPRESSANTS [Concomitant]
     Active Substance: UNSPECIFIED INGREDIENT
     Indication: ATTENTION DEFICIT/HYPERACTIVITY DISORDER
     Dosage: 10 MG, QD
     Dates: start: 201109
  2. ANTIDEPRESSANTS [Concomitant]
     Active Substance: UNSPECIFIED INGREDIENT
     Dosage: 40 MG, QD
     Dates: start: 201110, end: 201110
  3. STRATTERA [Suspect]
     Active Substance: ATOMOXETINE HYDROCHLORIDE
     Dosage: 10 MG, QD
     Dates: start: 201109, end: 201109
  4. ANTIDEPRESSANTS [Concomitant]
     Active Substance: UNSPECIFIED INGREDIENT
     Dosage: 40 MG, QD
     Dates: end: 201109
  5. DIPHENHYDRAMINE. [Concomitant]
     Active Substance: DIPHENHYDRAMINE
     Indication: INSOMNIA
     Dosage: 200 MG, QD
  6. HYDROXYZINE [Concomitant]
     Active Substance: HYDROXYZINE\HYDROXYZINE HYDROCHLORIDE
     Indication: INSOMNIA
     Dosage: 200 MG, QD

REACTIONS (4)
  - Impulsive behaviour [Recovered/Resolved]
  - Anger [Recovered/Resolved]
  - Impaired driving ability [Recovered/Resolved]
  - Aggression [Recovered/Resolved]
